FAERS Safety Report 6075567-0 (Version None)
Quarter: 2009Q1

REPORT INFORMATION
  Report Type: 
  Country: None (occurrence: None)
  Receive Date: 20090210
  Receipt Date: 20090128
  Transmission Date: 20090719
  Serious: Yes (Hospitalization)
  Sender: FDA-Public Use
  Company Number: US024782

PATIENT
  Age: 16 Year
  Sex: Female

DRUGS (9)
  1. MODAFINIL [Suspect]
     Indication: NARCOLEPSY
     Dosage: 200 MG DIVIDE3D INTO TWO DOSES ORAL
     Route: 048
     Dates: start: 20080710, end: 20080724
  2. MODAFINIL [Suspect]
     Indication: NARCOLEPSY
     Dosage: 300 MG DIVIDED INTO TOW DOSES ORAL
     Route: 048
     Dates: start: 20080725
  3. DEPAKENE [Concomitant]
  4. FLUVOXAMINE MALEATE [Concomitant]
  5. WYPAX [Concomitant]
  6. MYSLEE [Concomitant]
  7. AMOXAN [Concomitant]
  8. LENDORMIN [Concomitant]
  9. GASTER D [Concomitant]

REACTIONS (4)
  - HEADACHE [None]
  - INTENTIONAL OVERDOSE [None]
  - SOMNOLENCE [None]
  - SUICIDE ATTEMPT [None]
